FAERS Safety Report 6526069-6 (Version None)
Quarter: 2010Q1

REPORT INFORMATION
  Report Type: 
  Country: None (occurrence: None)
  Receive Date: 20100104
  Receipt Date: 20091221
  Transmission Date: 20100710
  Serious: Yes (Hospitalization)
  Sender: FDA-Public Use
  Company Number: US-SANOFI-AVENTIS-2009SA010484

PATIENT
  Age: 58 Year
  Sex: Male

DRUGS (20)
  1. OXALIPLATIN [Suspect]
     Route: 042
     Dates: start: 20090127, end: 20090630
  2. INVESTIGATIONAL DRUG [Suspect]
     Indication: NEOPLASM MALIGNANT
     Dosage: BLINDED
     Route: 042
     Dates: start: 20090127
  3. FLUOROURACIL [Suspect]
     Route: 042
     Dates: start: 20090127, end: 20090915
  4. FLUOROURACIL [Suspect]
     Route: 042
     Dates: start: 20090127, end: 20090915
  5. FOLINIC ACID [Suspect]
     Route: 065
     Dates: start: 20090124, end: 20090915
  6. BEVACIZUMAB [Suspect]
     Route: 065
     Dates: start: 20090127
  7. WARFARIN SODIUM [Suspect]
     Route: 065
  8. WARFARIN SODIUM [Suspect]
     Route: 065
  9. ONDANSETRON HYDROCHLORIDE [Concomitant]
     Route: 065
  10. HYDROCODONE BITARTRATE + ACETAMINOPHEN [Concomitant]
  11. FLUOXETINE [Concomitant]
  12. AXOTAL [Concomitant]
  13. ALLOPURINOL [Concomitant]
     Route: 065
  14. LOMOTIL [Concomitant]
  15. LISINOPRIL [Concomitant]
     Route: 065
  16. METFORMIN [Concomitant]
     Route: 065
  17. PAROXETINE HYDROCHLORIDE [Concomitant]
     Route: 065
  18. POTASSIUM CHLORIDE [Concomitant]
     Route: 065
  19. METOPROLOL TARTRATE [Concomitant]
     Route: 065
  20. LORAZEPAM [Concomitant]
     Route: 065

REACTIONS (7)
  - ALBUMIN URINE PRESENT [None]
  - BLOOD URINE PRESENT [None]
  - CEREBRAL HAEMORRHAGE [None]
  - CONVULSION [None]
  - DEVICE RELATED INFECTION [None]
  - STENOTROPHOMONAS SEPSIS [None]
  - THERAPEUTIC AGENT TOXICITY [None]
